FAERS Safety Report 20684861 (Version 2)
Quarter: 2022Q3

REPORT INFORMATION
  Report Type: Report from Study
  Country: US (occurrence: US)
  Receive Date: 20220407
  Receipt Date: 20220927
  Transmission Date: 20221027
  Serious: Yes (Hospitalization)
  Sender: FDA-Public Use
  Company Number: US-PFIZER INC-202200482435

PATIENT
  Age: 35 Year
  Sex: Female
  Weight: 88.435 kg

DRUGS (7)
  1. FUROSEMIDE [Suspect]
     Active Substance: FUROSEMIDE
     Indication: Diuretic therapy
     Dosage: UNK
     Dates: end: 202202
  2. FUROSEMIDE [Suspect]
     Active Substance: FUROSEMIDE
     Dosage: 60 MG(40MG (AM) AND 20MG (PM), EVERY 3 DAYS)
  3. SPIRONOLACTONE [Suspect]
     Active Substance: SPIRONOLACTONE
     Indication: Diuretic therapy
     Dosage: UNK(EVERY 3 WEEKS)
     Dates: end: 202202
  4. REMODULIN [Suspect]
     Active Substance: TREPROSTINIL
     Indication: Pulmonary arterial hypertension
     Dosage: 0.070 UG/KG
     Route: 041
     Dates: start: 202202
  5. REMODULIN [Suspect]
     Active Substance: TREPROSTINIL
     Dosage: 0.076 UG/KG
     Route: 041
     Dates: start: 20180917
  6. REMODULIN [Suspect]
     Active Substance: TREPROSTINIL
     Dosage: 0.074 UG/KG (AT THE RATE OF 35ML/24HR)
     Route: 041
     Dates: start: 20220424
  7. REMODULIN [Suspect]
     Active Substance: TREPROSTINIL
     Dosage: 0.072 UG/KG
     Route: 041

REACTIONS (7)
  - Hypotension [Recovered/Resolved]
  - Dyspnoea [Unknown]
  - Blood iron abnormal [Unknown]
  - Dizziness [Recovering/Resolving]
  - Hypoglycaemia [Recovering/Resolving]
  - Fluid retention [Unknown]
  - Weight abnormal [Unknown]

NARRATIVE: CASE EVENT DATE: 20220214
